FAERS Safety Report 8157799-0 (Version None)
Quarter: 2012Q1

REPORT INFORMATION
  Report Type: 
  Country: None (occurrence: None)
  Receive Date: 20120222
  Receipt Date: 20120216
  Transmission Date: 20120608
  Serious: Yes (Other)
  Sender: FDA-Public Use
  Company Number: FR-ROCHE-1028117

PATIENT
  Age: 60 Year
  Sex: Male

DRUGS (4)
  1. PREDNISONE TAB [Suspect]
     Indication: PRODUCT USED FOR UNKNOWN INDICATION
     Dosage: FOR PREMEDICATION
  2. MABTHERA [Suspect]
     Dosage: SECOND CYCLE: MAY/JUN/2010
     Route: 042
  3. LEXOMIL [Concomitant]
     Indication: ANXIETY
     Route: 048
  4. MABTHERA [Suspect]
     Indication: RHEUMATOID ARTHRITIS
     Dosage: FIRST CYCLE:JUNE/JULY/2009
     Route: 042

REACTIONS (1)
  - DEPRESSION [None]
